FAERS Safety Report 5328065-3 (Version None)
Quarter: 2007Q2

REPORT INFORMATION
  Report Type: 
  Country: None (occurrence: None)
  Receive Date: 20070514
  Receipt Date: 20070508
  Transmission Date: 20071010
  Serious: Yes (Other)
  Sender: FDA-Public Use
  Company Number: 2007SP001489

PATIENT
  Age: 30 Year
  Sex: Male
  Weight: 97.5234 kg

DRUGS (4)
  1. PEG-INTRON [Suspect]
     Indication: HEPATITIS C
     Dosage: SEE IMAGE
     Route: 058
     Dates: start: 20061222
  2. RIBAVIRIN [Suspect]
     Indication: HEPATITIS C
     Dosage: 60 MG;BID;PO
     Route: 048
     Dates: start: 20061222
  3. FLEXERIL [Concomitant]
  4. ULTRAM [Concomitant]

REACTIONS (22)
  - ANGER [None]
  - ANOREXIA [None]
  - BLOOD PRESSURE INCREASED [None]
  - CHILLS [None]
  - DEHYDRATION [None]
  - DEPRESSION [None]
  - DRY MOUTH [None]
  - HAEMATOCRIT INCREASED [None]
  - HAEMOGLOBIN INCREASED [None]
  - INFLUENZA LIKE ILLNESS [None]
  - MOOD ALTERED [None]
  - MUCOSAL DRYNESS [None]
  - NAUSEA [None]
  - NERVOUSNESS [None]
  - OXYGEN SATURATION DECREASED [None]
  - PAIN [None]
  - PYREXIA [None]
  - RED BLOOD CELL COUNT INCREASED [None]
  - TACHYCARDIA [None]
  - VOMITING [None]
  - WEIGHT DECREASED [None]
  - WHITE BLOOD CELL COUNT DECREASED [None]
